FAERS Safety Report 21938664 (Version 1)
Quarter: 2023Q1

REPORT INFORMATION
  Report Type: Spontaneous
  Country: RU (occurrence: RU)
  Receive Date: 20230201
  Receipt Date: 20230201
  Transmission Date: 20230418
  Serious: Yes (Other)
  Sender: FDA-Public Use
  Company Number: RU-EXELIXIS-CABO-22048867

PATIENT
  Age: 47 Year
  Sex: Male
  Weight: 66.2 kg

DRUGS (4)
  1. CABOMETYX [Suspect]
     Active Substance: CABOZANTINIB S-MALATE
     Indication: Metastatic renal cell carcinoma
     Dosage: 60 MG
     Route: 048
     Dates: start: 202106, end: 202110
  2. CABOMETYX [Suspect]
     Active Substance: CABOZANTINIB S-MALATE
     Dosage: 40 MG, QD
     Route: 048
     Dates: start: 202110
  3. TYROSOL [Concomitant]
     Indication: Hyperthyroidism
     Dosage: UNK
  4. CHLORAMPHENICOL\6-METHYLURACIL [Concomitant]
     Active Substance: CHLORAMPHENICOL\6-METHYLURACIL
     Indication: Palmar-plantar erythrodysaesthesia syndrome
     Dosage: UNK

REACTIONS (14)
  - Anal fistula [Recovered/Resolved]
  - Proctitis [Not Recovered/Not Resolved]
  - Scrotal swelling [Recovered/Resolved]
  - Scrotal pain [Recovered/Resolved]
  - Hyperthyroidism [Not Recovered/Not Resolved]
  - Rhinorrhoea [Recovered/Resolved]
  - Blood thyroid stimulating hormone increased [Not Recovered/Not Resolved]
  - Palmar-plantar erythrodysaesthesia syndrome [Not Recovered/Not Resolved]
  - Asthenia [Not Recovered/Not Resolved]
  - Weight decreased [Not Recovered/Not Resolved]
  - Dry skin [Not Recovered/Not Resolved]
  - Taste disorder [Not Recovered/Not Resolved]
  - Decreased appetite [Not Recovered/Not Resolved]
  - Diarrhoea [Not Recovered/Not Resolved]

NARRATIVE: CASE EVENT DATE: 20210701
